FAERS Safety Report 5542112-5 (Version None)
Quarter: 2007Q4

REPORT INFORMATION
  Report Type: 
  Country: None (occurrence: None)
  Receive Date: 20071210
  Receipt Date: 20070108
  Transmission Date: 20080405
  Serious: No
  Sender: FDA-Public Use
  Company Number: US-AMGEN-US195811

PATIENT
  Sex: Female

DRUGS (20)
  1. ENBREL [Suspect]
     Indication: RHEUMATOID ARTHRITIS
     Route: 058
     Dates: start: 20060927
  2. METHOTREXATE [Concomitant]
     Route: 048
     Dates: start: 20050101
  3. MINOCYCLINE HCL [Concomitant]
     Route: 065
  4. PLAVIX [Concomitant]
     Route: 065
  5. CYANOCOBALAMIN [Concomitant]
     Route: 065
  6. THIAMINE [Concomitant]
     Route: 065
  7. ZELNORM [Concomitant]
     Route: 065
  8. REMERON [Concomitant]
     Route: 065
  9. NIASPAN [Concomitant]
     Route: 065
  10. NEXIUM [Concomitant]
     Route: 065
  11. NEURONTIN [Concomitant]
     Route: 065
  12. NASONEX [Concomitant]
     Route: 065
  13. MICRO-K [Concomitant]
     Route: 065
  14. LIPITOR [Concomitant]
     Route: 065
  15. REGLAN [Concomitant]
     Route: 065
  16. LIDODERM PATCH (ENDO PHARMACEUTICALS) [Concomitant]
     Route: 065
  17. FUROSEMIDE [Concomitant]
     Route: 065
  18. FOLIC ACID [Concomitant]
     Route: 065
  19. MOBIC [Concomitant]
     Route: 065
  20. METRO [Concomitant]
     Route: 065

REACTIONS (3)
  - ABDOMINAL PAIN [None]
  - DIARRHOEA [None]
  - HEADACHE [None]
